FAERS Safety Report 7021331-5 (Version None)
Quarter: 2010Q3

REPORT INFORMATION
  Report Type: 
  Country: None (occurrence: None)
  Receive Date: 20100929
  Receipt Date: 20100915
  Transmission Date: 20110219
  Serious: Yes (Other)
  Sender: FDA-Public Use
  Company Number: DE-PFIZER INC-2010111370

PATIENT
  Age: 8 Year
  Sex: Female
  Weight: 20.8 kg

DRUGS (3)
  1. GENOTROPIN [Suspect]
     Indication: SMALL FOR DATES BABY
     Dosage: 0.7 MG, 1X/DAY
     Route: 058
     Dates: start: 20070101
  2. METHYLPHENIDATE [Interacting]
     Indication: ATTENTION DEFICIT/HYPERACTIVITY DISORDER
     Dosage: 10 MG, 1X/DAY
     Route: 048
     Dates: start: 20090801, end: 20100501
  3. METHYLPHENIDATE [Interacting]
     Dosage: 15 MG, 1X/DAY
     Route: 048
     Dates: start: 20100501

REACTIONS (2)
  - DRUG INEFFECTIVE [None]
  - DRUG INTERACTION [None]
